FAERS Safety Report 7247588-3 (Version None)
Quarter: 2011Q1

REPORT INFORMATION
  Report Type: 
  Country: None (occurrence: None)
  Receive Date: 20110127
  Receipt Date: 20110117
  Transmission Date: 20110831
  Serious: Yes (Other)
  Sender: FDA-Public Use
  Company Number: US-SANOFI-AVENTIS-2011SA003864

PATIENT
  Age: 69 Year
  Sex: Female

DRUGS (3)
  1. LANTUS [Suspect]
     Indication: TYPE 2 DIABETES MELLITUS
     Dosage: DOSE:20 UNIT(S)
     Route: 058
     Dates: start: 20060101
  2. CLOPIDOGREL BISULFATE [Suspect]
     Indication: STENT PLACEMENT
     Route: 048
     Dates: start: 20030101
  3. HUMALOG [Concomitant]

REACTIONS (5)
  - PAIN IN EXTREMITY [None]
  - VISUAL IMPAIRMENT [None]
  - BLOOD GLUCOSE FLUCTUATION [None]
  - CORONARY ARTERY OCCLUSION [None]
  - HEADACHE [None]
